FAERS Safety Report 8947777 (Version 2)
Quarter: 2013Q1

REPORT INFORMATION
  Report Type: Spontaneous
  Country: FR (occurrence: None)
  Receive Date: 20121127
  Receipt Date: 20121218
  Transmission Date: 20140127
  Serious: Yes (Hospitalization)
  Sender: FDA-Public Use
  Company Number: ENT 2012-0165

PATIENT
  Age: 76 Year
  Sex: Male

DRUGS (7)
  1. COMTAN [Suspect]
     Dosage: STRENGHTH: 200 MG
     Route: 048
  2. MODOPAR(LEVODOPA) [Suspect]
     Dosage: 3 CAPSULES ONCE DAILY STRENGTH: 100MG/25MG
     Route: 048
  3. ZYPREXA [Concomitant]
  4. TEDRALAN [Concomitant]
  5. OXBOL [Concomitant]
  6. ALLOPURINOL [Concomitant]
  7. RISPERDAL [Concomitant]
     Dosage: STRENGTH: 100MG/25MG
     Route: 048

REACTIONS (12)
  - Neuroleptic malignant syndrome [None]
  - Therapy cessation [None]
  - Oral candidiasis [None]
  - Lung disorder [None]
  - Aphagia [None]
  - Fluid intake reduced [None]
  - Dehydration [None]
  - Rhabdomyolysis [None]
  - Blood sodium increased [None]
  - Renal failure [None]
  - Blood pressure diastolic decreased [None]
  - Pyrexia [None]
